FAERS Safety Report 5158447-4 (Version None)
Quarter: 2006Q4

REPORT INFORMATION
  Report Type: 
  Country: None (occurrence: None)
  Receive Date: 20061128
  Receipt Date: 20061115
  Transmission Date: 20070319
  Serious: Yes (Other)
  Sender: FDA-Public Use
  Company Number: PHBS2006DE17825

PATIENT
  Age: 54 Year
  Sex: Male

DRUGS (7)
  1. MAPROTILINE HYDROCHLORIDE [Suspect]
     Indication: MAJOR DEPRESSION
     Route: 042
  2. MIRTAZAPINE [Suspect]
  3. DIAZEPAM [Suspect]
  4. TILIDINE [Suspect]
  5. PERAZINE [Suspect]
  6. RISPERIDONE [Suspect]
  7. MOCLOBEMIDE [Suspect]

REACTIONS (6)
  - COGNITIVE DISORDER [None]
  - CONFUSIONAL STATE [None]
  - CSF PROTEIN INCREASED [None]
  - MEMORY IMPAIRMENT [None]
  - MINI MENTAL STATUS EXAMINATION ABNORMAL [None]
  - NEUROTOXICITY [None]
